FAERS Safety Report 9426522 (Version 2)
Quarter: 2013Q4

REPORT INFORMATION
  Report Type: Spontaneous
  Country: CH (occurrence: CH)
  Receive Date: 20130730
  Receipt Date: 20131126
  Transmission Date: 20140711
  Serious: Yes (Hospitalization, Other)
  Sender: FDA-Public Use
  Company Number: CH-RANBAXY-2013RR-71595

PATIENT
  Age: 67 Year
  Sex: Male

DRUGS (3)
  1. ACENOCOUMAROL [Suspect]
     Indication: PULMONARY EMBOLISM
     Dosage: 3 MG/DAY
     Route: 048
  2. ACENOCOUMAROL [Interacting]
     Indication: THROMBOSIS
  3. AMOXICILLIN/CLAVULANIC ACID [Interacting]
     Indication: UPPER RESPIRATORY TRACT INFECTION
     Dosage: UNK
     Route: 065

REACTIONS (5)
  - Epistaxis [Unknown]
  - Anaemia [Unknown]
  - Myocardial infarction [Unknown]
  - Cardiac failure chronic [Unknown]
  - Drug interaction [Unknown]
